FAERS Safety Report 13192611 (Version 1)
Quarter: 2017Q1

REPORT INFORMATION
  Report Type: Spontaneous
  Country: BR (occurrence: BR)
  Receive Date: 20170207
  Receipt Date: 20170207
  Transmission Date: 20170428
  Serious: Yes (Other)
  Sender: FDA-Public Use
  Company Number: BR-PFIZER INC-2017047110

PATIENT
  Age: 53 Year
  Sex: Female
  Weight: 59 kg

DRUGS (3)
  1. LYRICA [Suspect]
     Active Substance: PREGABALIN
     Indication: PAIN
     Dosage: 75 MG, (1 TABLET AT NIGHT FOR 3 DAYS)
     Route: 048
     Dates: start: 201609
  2. ROSUVASTATIN CALCIUM. [Concomitant]
     Active Substance: ROSUVASTATIN CALCIUM
     Indication: BLOOD CHOLESTEROL ABNORMAL
     Dosage: 5 MG, 1X/DAY (1 TABLET AT NIGHT)
     Route: 048
     Dates: start: 2015
  3. SYNTHROID [Concomitant]
     Active Substance: LEVOTHYROXINE SODIUM
     Indication: THYROID DISORDER
     Dosage: 1 TABLET, DAILY
     Route: 048
     Dates: start: 201507

REACTIONS (1)
  - Rotator cuff syndrome [Unknown]
